FAERS Safety Report 5040322-7 (Version None)
Quarter: 2006Q2

REPORT INFORMATION
  Report Type: 
  Country: None (occurrence: None)
  Receive Date: 20060630
  Receipt Date: 20060512
  Transmission Date: 20061013
  Serious: No
  Sender: FDA-Public Use
  Company Number: US-BRISTOL-MYERS SQUIBB COMPANY-13376132

PATIENT
  Age: 58 Year
  Sex: Female
  Weight: 108 kg

DRUGS (16)
  1. ORENCIA [Suspect]
     Indication: RHEUMATOID ARTHRITIS
     Route: 042
     Dates: start: 20060404, end: 20060511
  2. PREDNISONE [Concomitant]
  3. ASPIRIN [Concomitant]
  4. ACETAMINOPHEN AND HYDROCODONE BITARTRATE [Concomitant]
  5. ZOCOR [Concomitant]
  6. LISINOPRIL [Concomitant]
  7. HUMULIN INSULIN [Concomitant]
  8. LANTUS [Concomitant]
  9. ALPRAZOLAM [Concomitant]
  10. FUROSEMIDE [Concomitant]
  11. COZAAR [Concomitant]
  12. ISOSORBIDE [Concomitant]
  13. PLAVIX [Concomitant]
  14. LEXAPRO [Concomitant]
  15. PROTONIX [Concomitant]
  16. TOPROL-XL [Concomitant]

REACTIONS (2)
  - HEADACHE [None]
  - PRURITUS [None]
